FAERS Safety Report 13609788 (Version 1)
Quarter: 2017Q2

REPORT INFORMATION
  Report Type: Spontaneous
  Country: US (occurrence: US)
  Receive Date: 20170602
  Receipt Date: 20170602
  Transmission Date: 20170830
  Serious: Yes (Life-Threatening, Hospitalization)
  Sender: FDA-Public Use
  Company Number: US-PFIZER INC-3113883

PATIENT
  Age: 60 Year
  Sex: Male
  Weight: 98.87 kg

DRUGS (3)
  1. CYTARABINE. [Suspect]
     Active Substance: CYTARABINE
     Indication: ACUTE MYELOID LEUKAEMIA
     Dosage: 225 MG, CONTINUOUS INFUSION ON DAYS 1-7, FREQ: CYCLICAL
     Route: 042
     Dates: start: 20140612, end: 20140619
  2. DAUNORUBICIN [Suspect]
     Active Substance: DAUNORUBICIN
     Indication: ACUTE MYELOID LEUKAEMIA
     Dosage: 135 MG, ONCE DAILY ON DAYS 1-3, FREQ: CYCLICAL
     Route: 042
     Dates: start: 20140612, end: 20140614
  3. INVESTIGATIONAL DRUG [Suspect]
     Active Substance: INVESTIGATIONAL PRODUCT
     Indication: ACUTE MYELOID LEUKAEMIA
     Dosage: 100 MG, ONCE DAILY, CONTINUOUS
     Route: 048
     Dates: start: 20140609, end: 20140622

REACTIONS (2)
  - Adenovirus infection [Recovered/Resolved]
  - Pneumonia [Recovered/Resolved]

NARRATIVE: CASE EVENT DATE: 20140624
